FAERS Safety Report 7544307-8 (Version None)
Quarter: 2011Q2

REPORT INFORMATION
  Report Type: 
  Country: None (occurrence: None)
  Receive Date: 20110613
  Receipt Date: 20080215
  Transmission Date: 20111010
  Serious: Yes (Other)
  Sender: FDA-Public Use
  Company Number: PHHY2008CA01889

PATIENT

DRUGS (1)
  1. DIOVAN [Suspect]
     Indication: HYPERTENSION
     Dosage: 80 MG, DAILY

REACTIONS (2)
  - URINE ALBUMIN/CREATININE RATIO ABNORMAL [None]
  - MICROALBUMINURIA [None]
